FAERS Safety Report 5009025-9 (Version None)
Quarter: 2006Q2

REPORT INFORMATION
  Report Type: 
  Country: None (occurrence: None)
  Receive Date: 20060404
  Receipt Date: 20051111
  Transmission Date: 20061013
  Serious: No
  Sender: FDA-Public Use
  Company Number: US200511000613

PATIENT
  Age: 53 Year
  Sex: Male

DRUGS (2)
  1. CYMBALTA [Suspect]
     Indication: DYSPNOEA
     Dosage: 90MG, DAILY (1/D)
     Dates: start: 20050901
  2. NICOTINE [Concomitant]

REACTIONS (3)
  - ANORGASMIA [None]
  - DYSURIA [None]
  - TESTICULAR DISORDER [None]
